FAERS Safety Report 15668821 (Version 2)
Quarter: 2018Q4

REPORT INFORMATION
  Report Type: Spontaneous
  Country: US (occurrence: US)
  Receive Date: 20181129
  Receipt Date: 20181211
  Transmission Date: 20190205
  Serious: Yes (Other)
  Sender: FDA-Public Use
  Company Number: US-HTU-2018US017964

PATIENT
  Sex: Female

DRUGS (1)
  1. VALCHLOR [Suspect]
     Active Substance: MECHLORETHAMINE
     Indication: MYCOSIS FUNGOIDES
     Dosage: THIN FILM TO THE AFFECTED SKIN, QD
     Route: 061
     Dates: start: 20170810

REACTIONS (2)
  - Dry skin [Not Recovered/Not Resolved]
  - Mycosis fungoides recurrent [Not Recovered/Not Resolved]
